FAERS Safety Report 8519069 (Version 3)
Quarter: 2012Q4

REPORT INFORMATION
  Report Type: 
  Country: US (occurrence: US)
  Receive Date: 20120418
  Receipt Date: 20121101
  Transmission Date: 20130627
  Serious: Yes (Other)
  Sender: FDA-Public Use
  Company Number: US-PFIZER INC-2012092698

PATIENT
  Age: 50 Year
  Sex: Female
  Weight: 107 kg

DRUGS (2)
  1. LYRICA [Suspect]
     Indication: FIBROMYALGIA
     Dosage: 300 mg, 2x/day
     Route: 048
  2. METFORMIN [Concomitant]
     Indication: DIABETES
     Dosage: 500 mg, 2x/day

REACTIONS (1)
  - Spinal disorder [Unknown]
